FAERS Safety Report 13068521 (Version 1)
Quarter: 2016Q4

REPORT INFORMATION
  Report Type: Spontaneous
  Country: US (occurrence: US)
  Receive Date: 20161227
  Receipt Date: 20161227
  Transmission Date: 20170207
  Serious: Yes (Hospitalization, Other)
  Sender: FDA-Public Use
  Company Number: None

PATIENT

DRUGS (2)
  1. HALDOL DECANOATE [Suspect]
     Active Substance: HALOPERIDOL DECANOATE
     Dosage: ?          OTHER FREQUENCY:ONCE;?
     Route: 030
  2. OLANZAPINE. [Suspect]
     Active Substance: OLANZAPINE
     Route: 048

REACTIONS (3)
  - Hypersexuality [None]
  - Neuroleptic malignant syndrome [None]
  - Agitation [None]

NARRATIVE: CASE EVENT DATE: 20160820
